FAERS Safety Report 7967640-4 (Version None)
Quarter: 2011Q4

REPORT INFORMATION
  Report Type: 
  Country: None (occurrence: None)
  Receive Date: 20111207
  Receipt Date: 20111116
  Transmission Date: 20120403
  Serious: Yes (Other)
  Sender: FDA-Public Use
  Company Number: 2011-01320

PATIENT
  Age: 73 Year
  Sex: Female
  Weight: 74.8435 kg

DRUGS (3)
  1. LEVOTHYROXINE SODIUM [Concomitant]
  2. ZICAM ULTRA COLD REMEDY RAPIDMELTS (ORANGE CREAM) [Suspect]
     Indication: NASOPHARYNGITIS
     Dosage: 1-2 RAPIDMELTS DAILY
     Dates: start: 20111108, end: 20111113
  3. CENTRUM SILVER [Concomitant]

REACTIONS (4)
  - HYPERTENSION [None]
  - VISION BLURRED [None]
  - CARDIAC MURMUR [None]
  - HEADACHE [None]
